FAERS Safety Report 10097574 (Version 1)
Quarter: 2014Q2

REPORT INFORMATION
  Report Type: Spontaneous
  Country: US (occurrence: US)
  Receive Date: 20140423
  Receipt Date: 20140423
  Transmission Date: 20141212
  Serious: No
  Sender: FDA-Public Use
  Company Number: US-BIOGENIDEC-2013BI088673

PATIENT
  Age: 52 Year
  Sex: Female
  Weight: 46 kg

DRUGS (14)
  1. TECFIDERA [Suspect]
     Indication: PRODUCT USED FOR UNKNOWN INDICATION
     Route: 048
  2. TECFIDERA [Suspect]
     Indication: PRODUCT USED FOR UNKNOWN INDICATION
     Route: 048
  3. TECFIDERA [Suspect]
     Indication: PRODUCT USED FOR UNKNOWN INDICATION
  4. TECFIDERA [Suspect]
     Indication: PRODUCT USED FOR UNKNOWN INDICATION
     Route: 048
     Dates: start: 20140320, end: 20140403
  5. TECFIDERA [Suspect]
     Indication: PRODUCT USED FOR UNKNOWN INDICATION
     Route: 048
     Dates: start: 20140321, end: 20140403
  6. ELESTRIN [Concomitant]
  7. NEURONTIN [Concomitant]
  8. AMBIEN [Concomitant]
  9. DITROPAN [Concomitant]
  10. VITAMIN D [Concomitant]
  11. VITAMIN B12 [Concomitant]
  12. MIRAPEX [Concomitant]
  13. MULTIVITAMIN [Concomitant]
  14. PROVIGIL [Concomitant]

REACTIONS (16)
  - Malaise [Unknown]
  - Underdose [Recovered/Resolved]
  - Drug intolerance [Unknown]
  - Influenza like illness [Not Recovered/Not Resolved]
  - Pyrexia [Unknown]
  - Chills [Unknown]
  - Decreased appetite [Unknown]
  - Dry mouth [Unknown]
  - Dysgeusia [Unknown]
  - Flushing [Unknown]
  - Burning sensation [Unknown]
  - Nausea [Unknown]
  - Vomiting [Not Recovered/Not Resolved]
  - Abdominal pain upper [Unknown]
  - Dyspepsia [Unknown]
  - Diarrhoea [Not Recovered/Not Resolved]
